FAERS Safety Report 15348380 (Version 1)
Quarter: 2018Q3

REPORT INFORMATION
  Report Type: Spontaneous
  Country: GB (occurrence: GB)
  Receive Date: 20180904
  Receipt Date: 20180904
  Transmission Date: 20181010
  Serious: Yes (Hospitalization)
  Sender: FDA-Public Use
  Company Number: GB-JNJFOC-20180841540

PATIENT
  Sex: Female

DRUGS (2)
  1. DOXORUBICIN HYDROCHLORIDE. [Suspect]
     Active Substance: DOXORUBICIN HYDROCHLORIDE
     Indication: LEIOMYOSARCOMA
     Route: 065
  2. IFOSFAMIDE. [Suspect]
     Active Substance: IFOSFAMIDE
     Indication: LEIOMYOSARCOMA
     Route: 065

REACTIONS (6)
  - Product use in unapproved indication [Unknown]
  - White blood cell count decreased [Recovering/Resolving]
  - Infection [Recovering/Resolving]
  - Off label use [Unknown]
  - Adverse drug reaction [Unknown]
  - Thrombocytopenia [Recovering/Resolving]
